FAERS Safety Report 4451216-X (Version None)
Quarter: 2004Q3

REPORT INFORMATION
  Report Type: 
  Country: None (occurrence: None)
  Receive Date: 20040915
  Receipt Date: 20040915
  Transmission Date: 20050211
  Serious: Yes (Death)
  Sender: FDA-Public Use
  Company Number: None

PATIENT
  Age: 48 Year
  Sex: Male

DRUGS (3)
  1. TAXOTERE [Suspect]
     Indication: GASTRIC CANCER
     Dosage: 30 MG/M2 IV
     Route: 042
     Dates: start: 20030514, end: 20030521
  2. CISPLATIN [Suspect]
     Indication: GASTRIC CANCER
     Dosage: 25 MG/M2 IV
     Route: 042
     Dates: start: 20030514, end: 20030521
  3. CPT-11 [Suspect]
     Indication: GASTRIC CANCER
     Dosage: 50 MG/M2 IV
     Route: 042
     Dates: start: 20030514, end: 20030521

REACTIONS (8)
  - ANOREXIA [None]
  - CONSTIPATION [None]
  - DEHYDRATION [None]
  - DIARRHOEA [None]
  - DYSGEUSIA [None]
  - FATIGUE [None]
  - NAUSEA [None]
  - WEIGHT DECREASED [None]
